FAERS Safety Report 26032590 (Version 1)
Quarter: 2025Q4

REPORT INFORMATION
  Report Type: Spontaneous
  Country: US (occurrence: US)
  Receive Date: 20251112
  Receipt Date: 20251112
  Transmission Date: 20260118
  Serious: Yes (Death, Life-Threatening, Other)
  Sender: UPSHER SMITH LABORATORIES
  Company Number: US-UPSHER-SMITH LABORATORIES, LLC-20251001428

PATIENT
  Age: 45 Year
  Sex: Female

DRUGS (1)
  1. KLOR-CON [Suspect]
     Active Substance: POTASSIUM CHLORIDE
     Indication: Product used for unknown indication
     Dosage: INGESTING NEARLY 1 KILOGRAM OF KCL POWDER
     Route: 065

REACTIONS (6)
  - Acute myocardial infarction [Unknown]
  - Hyperkalaemia [Fatal]
  - Cardiac arrest [Unknown]
  - Sinus bradycardia [Unknown]
  - Metabolic acidosis [Unknown]
  - Intentional overdose [Unknown]
